FAERS Safety Report 12854388 (Version 1)
Quarter: 2016Q4

REPORT INFORMATION
  Report Type: Spontaneous
  Country: US (occurrence: US)
  Receive Date: 20161017
  Receipt Date: 20161017
  Transmission Date: 20170207
  Serious: No
  Sender: FDA-Public Use
  Company Number: US-PFIZER INC-2016429811

PATIENT
  Age: 26 Year
  Sex: Female

DRUGS (6)
  1. LYRICA [Suspect]
     Active Substance: PREGABALIN
     Dosage: 75 MG, 2X/DAY
     Route: 048
  2. ZANTAC [Concomitant]
     Active Substance: RANITIDINE HYDROCHLORIDE
     Dosage: 150 MG, AS NEEDED (ONCE A DAY )
  3. BUSPAR [Concomitant]
     Active Substance: BUSPIRONE HYDROCHLORIDE
     Dosage: 5 MG, 1X/DAY
  4. GABAPENTIN. [Concomitant]
     Active Substance: GABAPENTIN
     Dosage: 100 MG, 2X/DAY
  5. NASONEX [Concomitant]
     Active Substance: MOMETASONE FUROATE
     Indication: PAIN IN EXTREMITY
  6. NASONEX [Concomitant]
     Active Substance: MOMETASONE FUROATE
     Indication: FIBROMYALGIA
     Dosage: UNK UNK, 1X/DAY(50 MCG/ACT SUSPENSION 2 SPRAYS IN EACH NOSTRIL ONCE A DAY)
     Route: 045

REACTIONS (2)
  - Hypoaesthesia [Unknown]
  - Muscle contracture [Unknown]
